FAERS Safety Report 4524102-4 (Version None)
Quarter: 2004Q4

REPORT INFORMATION
  Report Type: 
  Country: None (occurrence: None)
  Receive Date: 20041119
  Receipt Date: 20040803
  Transmission Date: 20050328
  Serious: No
  Sender: FDA-Public Use
  Company Number: PHEH2004US08437

PATIENT
  Sex: Female

DRUGS (1)
  1. ZELNORM [Suspect]

REACTIONS (6)
  - BLOOD THYROID STIMULATING HORMONE [None]
  - LABORATORY TEST INTERFERENCE [None]
  - OESTRADIOL [None]
  - SERUM FERRITIN [None]
  - THYROXINE [None]
  - TRI-IODOTHYRONINE [None]
